FAERS Safety Report 14695578 (Version 1)
Quarter: 2018Q1

REPORT INFORMATION
  Report Type: Spontaneous
  Country: AU (occurrence: AU)
  Receive Date: 20180329
  Receipt Date: 20180329
  Transmission Date: 20180509
  Serious: Yes (Other)
  Sender: FDA-Public Use
  Company Number: AU-TEVA-2018-AU-874219

PATIENT
  Age: 75 Year
  Sex: Male

DRUGS (2)
  1. IMATINIB [Suspect]
     Active Substance: IMATINIB
     Dosage: IMATINIB 600MG
     Route: 048
  2. IMATINIB [Suspect]
     Active Substance: IMATINIB
     Dosage: IMATINB 400MG
     Route: 048

REACTIONS (1)
  - Philadelphia chromosome positive [Not Recovered/Not Resolved]
